FAERS Safety Report 14305638 (Version 2)
Quarter: 2019Q1

REPORT INFORMATION
  Report Type: Spontaneous
  Country: PH (occurrence: PH)
  Receive Date: 20171219
  Receipt Date: 20190114
  Transmission Date: 20190417
  Serious: Yes (Other)
  Sender: FDA-Public Use
  Company Number: PH-OTSUKA-BMS-2015-047659

PATIENT
  Sex: Female

DRUGS (6)
  1. ARIPIPRAZOLE. [Suspect]
     Active Substance: ARIPIPRAZOLE
     Indication: BIPOLAR DISORDER
     Dosage: 15 MG, QD
     Route: 060
  2. LITHIUM CARBONATE. [Suspect]
     Active Substance: LITHIUM CARBONATE
     Indication: INTELLECTUAL DISABILITY
  3. LITHIUM CARBONATE. [Suspect]
     Active Substance: LITHIUM CARBONATE
     Indication: BIPOLAR DISORDER
     Dosage: 450 MG, QD
     Route: 065
  4. CLUSIVOL (ASCORBIC ACID\ERGOCALCIFEROL\NICOTINAMIDE\PYRIDOXINE HYDROCHLORIDE\RETINOL\RIBOFLAVIN\THIAMINE HYDROCHLORIDE) [Suspect]
     Active Substance: VITAMINS
     Indication: BIPOLAR DISORDER
     Dosage: 1 DF, QD
     Route: 065
  5. ARIPIPRAZOLE. [Suspect]
     Active Substance: ARIPIPRAZOLE
     Indication: INTELLECTUAL DISABILITY
  6. CLUSIVOL (ASCORBIC ACID\ERGOCALCIFEROL\NICOTINAMIDE\PYRIDOXINE HYDROCHLORIDE\RETINOL\RIBOFLAVIN\THIAMINE HYDROCHLORIDE) [Suspect]
     Active Substance: VITAMINS
     Indication: INTELLECTUAL DISABILITY

REACTIONS (4)
  - Skin discolouration [Unknown]
  - Deafness [Unknown]
  - Drug ineffective [Unknown]
  - Dyspnoea [Unknown]
